FAERS Safety Report 18508444 (Version 2)
Quarter: 2021Q2

REPORT INFORMATION
  Report Type: Other
  Country: CA (occurrence: CA)
  Receive Date: 20201116
  Receipt Date: 20210404
  Transmission Date: 20210717
  Serious: Yes (Other)
  Sender: FDA-Public Use
  Company Number: CA-CELLTRION INC.-2020CA031204

PATIENT

DRUGS (19)
  1. GABAPENTIN. [Concomitant]
     Active Substance: GABAPENTIN
  2. BENADRYL [Concomitant]
     Active Substance: DIPHENHYDRAMINE HYDROCHLORIDE
     Indication: PREMEDICATION
     Dosage: 50 MG
     Route: 048
  3. HYDROCHLOROTHIAZIDE. [Concomitant]
     Active Substance: HYDROCHLOROTHIAZIDE
  4. HYDROXYCHLOROQUINE SULFATE. [Concomitant]
     Active Substance: HYDROXYCHLOROQUINE SULFATE
  5. MONTELUKAST [Concomitant]
     Active Substance: MONTELUKAST SODIUM
  6. OXYNEO [Concomitant]
     Active Substance: OXYCODONE
  7. LEFLUNOMIDE. [Concomitant]
     Active Substance: LEFLUNOMIDE
  8. CYCLOBENZAPRINE. [Concomitant]
     Active Substance: CYCLOBENZAPRINE
  9. TRYPTOPHAN [TRYPTOPHAN, L?] [Concomitant]
     Active Substance: TRYPTOPHAN
  10. TYLENOL [Concomitant]
     Active Substance: ACETAMINOPHEN
     Indication: PREMEDICATION
     Dosage: 650 MILLIGRAM
     Route: 048
  11. VENTOLIN [Concomitant]
     Active Substance: ALBUTEROL SULFATE
  12. RITUXIMAB (UNKNOWN) [Suspect]
     Active Substance: RITUXIMAB
     Indication: RHEUMATOID ARTHRITIS
     Dosage: 1000 MILLIGRAM
     Route: 042
  13. ADVAIR HFA [Concomitant]
     Active Substance: FLUTICASONE PROPIONATE\SALMETEROL XINAFOATE
  14. RISEDRONATE [Concomitant]
     Active Substance: RISEDRONATE SODIUM
  15. XARELTO [Concomitant]
     Active Substance: RIVAROXABAN
  16. CYMBALTA [Concomitant]
     Active Substance: DULOXETINE HYDROCHLORIDE
  17. METHYLPREDNISOLONE SODIUM SUCCINATE. [Concomitant]
     Active Substance: METHYLPREDNISOLONE SODIUM SUCCINATE
     Indication: PREMEDICATION
     Dosage: 100 MILLIGRAM
     Route: 042
  18. PANTOPRAZOLE [Concomitant]
     Active Substance: PANTOPRAZOLE
  19. RAMIPRIL. [Concomitant]
     Active Substance: RAMIPRIL

REACTIONS (11)
  - Blood pressure diastolic abnormal [Recovered/Resolved]
  - Blood pressure increased [Recovered/Resolved]
  - Oxygen saturation decreased [Recovered/Resolved]
  - Illness [Recovered/Resolved]
  - Retinal detachment [Recovered/Resolved]
  - Blood pressure fluctuation [Recovered/Resolved]
  - Infusion related reaction [Recovered/Resolved]
  - Body temperature increased [Recovered/Resolved]
  - Angina pectoris [Recovered/Resolved]
  - Heart rate increased [Recovered/Resolved]
  - Bronchitis [Recovered/Resolved]
